FAERS Safety Report 4792926-4 (Version None)
Quarter: 2005Q4

REPORT INFORMATION
  Report Type: 
  Country: None (occurrence: None)
  Receive Date: 20051010
  Receipt Date: 20051003
  Transmission Date: 20060501
  Serious: Yes (Other)
  Sender: FDA-Public Use
  Company Number: FR-ROCHE-420051

PATIENT
  Age: 20 Year
  Sex: Female

DRUGS (2)
  1. ROACCUTANE [Suspect]
     Indication: ACNE
     Route: 048
     Dates: start: 20050115, end: 20050815
  2. ORAL CONTRACEPTIVE NOS [Concomitant]
     Route: 048
     Dates: start: 20050115, end: 20050815

REACTIONS (2)
  - BLADDER DISORDER [None]
  - VULVOVAGINAL DRYNESS [None]
